FAERS Safety Report 22743334 (Version 2)
Quarter: 2023Q4

REPORT INFORMATION
  Report Type: Report from Study
  Country: GB (occurrence: GB)
  Receive Date: 20230724
  Receipt Date: 20231201
  Transmission Date: 20240110
  Serious: Yes (Other)
  Sender: FDA-Public Use
  Company Number: GB-SA-SAC20220906001563

PATIENT
  Age: 43 Year
  Sex: Female

DRUGS (5)
  1. TOPIRAMATE [Suspect]
     Active Substance: TOPIRAMATE
     Indication: Migraine
     Dosage: 3 DOSAGE FORM, QD
     Route: 065
     Dates: start: 20230702
  2. TOPIRAMATE [Suspect]
     Active Substance: TOPIRAMATE
     Dosage: 1 DOSAGE FORM, QD
     Route: 065
     Dates: start: 20230617, end: 20230624
  3. TOPIRAMATE [Suspect]
     Active Substance: TOPIRAMATE
     Dosage: 2 DOSAGE FORM, QD
     Route: 065
     Dates: start: 20230625, end: 20230701
  4. ALEMTUZUMAB [Suspect]
     Active Substance: ALEMTUZUMAB
     Indication: Product used for unknown indication
     Dosage: UNK
     Route: 065
     Dates: start: 202201, end: 202201
  5. ALEMTUZUMAB [Suspect]
     Active Substance: ALEMTUZUMAB
     Dosage: UNK
     Route: 065
     Dates: start: 201910, end: 2019

REACTIONS (18)
  - Multiple sclerosis [Not Recovered/Not Resolved]
  - Emotional distress [Unknown]
  - Migraine [Not Recovered/Not Resolved]
  - Lip disorder [Not Recovered/Not Resolved]
  - Pain in extremity [Not Recovered/Not Resolved]
  - Headache [Unknown]
  - Abdominal pain [Not Recovered/Not Resolved]
  - Abdominal distension [Not Recovered/Not Resolved]
  - Crying [Unknown]
  - Gait disturbance [Unknown]
  - Limb discomfort [Unknown]
  - Sensory disturbance [Unknown]
  - Urinary incontinence [Unknown]
  - Depressed mood [Not Recovered/Not Resolved]
  - Taste disorder [Not Recovered/Not Resolved]
  - Arthralgia [Not Recovered/Not Resolved]
  - Paraesthesia [Unknown]
  - Fatigue [Unknown]

NARRATIVE: CASE EVENT DATE: 20230701
